FAERS Safety Report 6451481-3 (Version None)
Quarter: 2009Q4

REPORT INFORMATION
  Report Type: 
  Country: None (occurrence: None)
  Receive Date: 20091123
  Receipt Date: 20090506
  Transmission Date: 20100525
  Serious: Yes (Other)
  Sender: FDA-Public Use
  Company Number: US-BRISTOL-MYERS SQUIBB COMPANY-14608459

PATIENT
  Age: 3 Year
  Sex: Male

DRUGS (1)
  1. AVALIDE [Suspect]
     Dosage: 2 TABLETS OF 150MG TAKEN.

REACTIONS (1)
  - ACCIDENTAL DRUG INTAKE BY CHILD [None]
